FAERS Safety Report 5105623-2 (Version None)
Quarter: 2006Q3

REPORT INFORMATION
  Report Type: 
  Country: None (occurrence: None)
  Receive Date: 20060915
  Receipt Date: 20060907
  Transmission Date: 20061208
  Serious: Yes (Other)
  Sender: FDA-Public Use
  Company Number: CA-JNJFOC-20060902266

PATIENT
  Age: 50 Year
  Sex: Female

DRUGS (2)
  1. RISPERIDONE [Suspect]
     Indication: DEPRESSION
  2. ANTIDEPRESSANT [Concomitant]
     Indication: DEPRESSION

REACTIONS (2)
  - BLOOD PROLACTIN INCREASED [None]
  - BREAST HAEMORRHAGE [None]
